FAERS Safety Report 5194335-5 (Version None)
Quarter: 2006Q4

REPORT INFORMATION
  Report Type: 
  Country: None (occurrence: None)
  Receive Date: 20061228
  Receipt Date: 20050815
  Transmission Date: 20070319
  Serious: Yes (Other)
  Sender: FDA-Public Use
  Company Number: US-SHR-US-2005-016643

PATIENT
  Age: 46 Year
  Sex: Female
  Weight: 94.331 kg

DRUGS (5)
  1. BETASERON [Suspect]
     Indication: RELAPSING-REMITTING MULTIPLE SCLEROSIS
     Dosage: 8 MIU, EVERY 2D
     Route: 058
     Dates: start: 19910101
  2. PREMARIN [Concomitant]
  3. DEPAKOTE [Concomitant]
  4. RISPERDAL [Concomitant]
  5. ZANAFLEX [Concomitant]

REACTIONS (12)
  - ANOREXIA [None]
  - ASTHENIA [None]
  - BENIGN NEOPLASM OF THYROID GLAND [None]
  - BLOOD GLUCOSE DECREASED [None]
  - BLOOD PRESSURE FLUCTUATION [None]
  - DYSPHAGIA [None]
  - HYPERTENSION [None]
  - HYPERTHYROIDISM [None]
  - INTERVERTEBRAL DISC PROTRUSION [None]
  - MULTIPLE SCLEROSIS [None]
  - THYROID NEOPLASM [None]
  - WEIGHT DECREASED [None]
